FAERS Safety Report 24366863 (Version 2)
Quarter: 2024Q4

REPORT INFORMATION
  Report Type: Spontaneous
  Country: US (occurrence: US)
  Receive Date: 20240926
  Receipt Date: 20241105
  Transmission Date: 20250115
  Serious: Yes (Other)
  Sender: BRISTOL-MYERS SQUIBB COMPANY
  Company Number: US-BRISTOL-MYERS SQUIBB COMPANY-2024-151031

PATIENT
  Age: 86 Year
  Sex: Female
  Weight: 63.96 kg

DRUGS (2)
  1. POMALYST [Suspect]
     Active Substance: POMALIDOMIDE
     Indication: Plasma cell myeloma
     Dosage: FREQUENCY: DAILY FOR 21 DAYS ON THEN 7 DAYS OFF.
     Route: 048
  2. POMALYST [Suspect]
     Active Substance: POMALIDOMIDE
     Dosage: 1 CAPSULE DAILY FOR 14 DAYS, THEN 14 DAYS OFF
     Route: 048

REACTIONS (5)
  - Constipation [Unknown]
  - Blood disorder [Unknown]
  - Fatigue [Unknown]
  - Full blood count abnormal [Unknown]
  - Off label use [Unknown]
